FAERS Safety Report 7495449-7 (Version None)
Quarter: 2011Q2

REPORT INFORMATION
  Report Type: 
  Country: None (occurrence: None)
  Receive Date: 20110523
  Receipt Date: 20110406
  Transmission Date: 20111010
  Serious: No
  Sender: FDA-Public Use
  Company Number: US-TYCO HEALTHCARE/MALLINCKRODT-T201100726

PATIENT
  Sex: Female
  Weight: 59.864 kg

DRUGS (9)
  1. PHENERGAN                          /00033001/ [Concomitant]
     Indication: NAUSEA
     Dosage: UNK, PRN
  2. SENOKOT [Concomitant]
  3. VITAMINS                           /90003601/ [Concomitant]
  4. FENTANYL-100 [Suspect]
     Dosage: 1 PATCH Q72 HOURS
     Route: 062
  5. DOXEPIN [Concomitant]
     Indication: INSOMNIA
     Dosage: 50 MG, PRN
  6. ATIVAN [Concomitant]
     Indication: ANXIETY
     Dosage: 1 MG Q2HR PRN
  7. FENTANYL-100 [Suspect]
     Indication: CANCER PAIN
     Dosage: 1 PATCH Q 48 HR
     Route: 062
     Dates: start: 20110401
  8. MORPHINE [Concomitant]
     Indication: PAIN
     Dosage: 15 MG, PRN
  9. HYDROCHLOROTHIAZIDE [Concomitant]
     Indication: BLOOD PRESSURE
     Dosage: 12.5 UNK, QD

REACTIONS (2)
  - APPLICATION SITE RASH [None]
  - APPLICATION SITE PRURITUS [None]
